FAERS Safety Report 5358148-3 (Version None)
Quarter: 2007Q2

REPORT INFORMATION
  Report Type: 
  Country: None (occurrence: None)
  Receive Date: 20070530
  Receipt Date: 20061019
  Transmission Date: 20071010
  Serious: Yes (Hospitalization)
  Sender: FDA-Public Use
  Company Number: US200605005827

PATIENT
  Age: 61 Year
  Sex: Female
  Weight: 81.6 kg

DRUGS (3)
  1. ZYPREXA [Suspect]
     Dosage: 20 MG
     Dates: start: 20020401, end: 20050301
  2. DIVALPROEX SODIUM [Concomitant]
  3. TRAZODONE HCL [Concomitant]

REACTIONS (5)
  - DIABETES MELLITUS [None]
  - DIABETIC COMA [None]
  - HYPERTENSION [None]
  - OBESITY [None]
  - PANCREATITIS [None]
